FAERS Safety Report 10543805 (Version 1)
Quarter: 2014Q4

REPORT INFORMATION
  Report Type: Spontaneous
  Country: BR (occurrence: BR)
  Receive Date: 20141027
  Receipt Date: 20141027
  Transmission Date: 20150529
  Serious: Yes (Other)
  Sender: FDA-Public Use
  Company Number: BR-MYLANLABS-2014M1008021

PATIENT

DRUGS (7)
  1. DOXAZOSIN [Suspect]
     Active Substance: DOXAZOSIN\DOXAZOSIN MESYLATE
     Dosage: 2 MG/DAY
     Route: 065
  2. DICLOFENAC [Concomitant]
     Active Substance: DICLOFENAC
     Indication: MYALGIA
     Dosage: 50MG IF NEEDED
     Route: 065
  3. GLUCANTIME [Suspect]
     Active Substance: MEGLUMINE ANTIMONIATE
     Indication: LEISHMANIASIS
     Dosage: 16.9 MGSB+5/KG/DAY FOR 30 DAYS
     Route: 065
  4. NIFEDIPINE. [Concomitant]
     Active Substance: NIFEDIPINE
     Indication: HYPERTENSION
     Dosage: 20 MG/DAY
     Route: 065
  5. ACICLOVIR [Concomitant]
     Active Substance: ACYCLOVIR
     Indication: HERPES ZOSTER
     Route: 065
  6. UREA. [Concomitant]
     Active Substance: UREA
     Indication: HERPES ZOSTER
     Route: 065
  7. HYDROCHLOROTHIAZIDE. [Suspect]
     Active Substance: HYDROCHLOROTHIAZIDE
     Indication: HYPERTENSION
     Dosage: 25 MG/DAY
     Route: 065

REACTIONS (22)
  - Decreased appetite [None]
  - Oral disorder [None]
  - Weight decreased [None]
  - Dizziness [None]
  - Electrocardiogram QT prolonged [None]
  - Arthralgia [None]
  - Skin exfoliation [None]
  - Tremor [None]
  - Tinnitus [None]
  - Fall [None]
  - Nephropathy toxic [None]
  - Blood glucose increased [None]
  - Alanine aminotransferase increased [None]
  - Rash [None]
  - Blood alkaline phosphatase increased [None]
  - Gamma-glutamyltransferase increased [None]
  - Myalgia [None]
  - Herpes zoster [None]
  - Gait disturbance [None]
  - Ototoxicity [Recovered/Resolved]
  - Pancreatic enzymes increased [None]
  - Dry mouth [None]
